FAERS Safety Report 16359743 (Version 2)
Quarter: 2019Q4

REPORT INFORMATION
  Report Type: Report from Study
  Country: US (occurrence: US)
  Receive Date: 20190528
  Receipt Date: 20191017
  Transmission Date: 20200122
  Serious: No
  Sender: FDA-Public Use
  Company Number: US-ROCHE-2324788

PATIENT
  Age: 67 Year
  Sex: Female
  Weight: 67.19 kg

DRUGS (25)
  1. KLONOPIN [Suspect]
     Active Substance: CLONAZEPAM
     Indication: PRODUCT USED FOR UNKNOWN INDICATION
     Dosage: HALF IN THE MORNING AT NIGHT
     Route: 065
  2. TYLENOL [Concomitant]
     Active Substance: ACETAMINOPHEN
     Dosage: ONGOING:YES
     Route: 065
  3. OCREVUS [Suspect]
     Active Substance: OCRELIZUMAB
     Indication: RELAPSING-REMITTING MULTIPLE SCLEROSIS
     Route: 065
     Dates: start: 20190419
  4. TOFRANIL [Concomitant]
     Active Substance: IMIPRAMINE HYDROCHLORIDE
     Indication: DEPRESSION
     Dosage: ONGOING:YES
     Route: 065
  5. MUCINEX DM [Concomitant]
     Active Substance: DEXTROMETHORPHAN HYDROBROMIDE\GUAIFENESIN
     Dosage: YES
     Route: 065
  6. FLAXSEED [Concomitant]
     Active Substance: FLAX SEED
     Dosage: ONGOING:YES
     Route: 065
  7. MYRBETRIQ [Concomitant]
     Active Substance: MIRABEGRON
     Indication: NEUROGENIC BLADDER
     Dosage: ONGOING : YES
     Route: 065
  8. DETROL [Concomitant]
     Active Substance: TOLTERODINE TARTRATE
     Dosage: ONGOING : YES
     Route: 065
  9. FOSAMAX [Concomitant]
     Active Substance: ALENDRONATE SODIUM
     Indication: OSTEOPENIA
     Dosage: ONGOING:YES
     Route: 065
  10. VITAMIN C [Concomitant]
     Active Substance: ASCORBIC ACID
     Dosage: ONGOING:YES
     Route: 065
  11. COLACE [Concomitant]
     Active Substance: DOCUSATE SODIUM
     Dosage: 2 EVERY MORNING AND 3 EVERY NIGHT ;ONGOING: YES
     Route: 065
  12. MIRALAX [Concomitant]
     Active Substance: POLYETHYLENE GLYCOL 3350
     Route: 065
  13. IBUPROFEN. [Concomitant]
     Active Substance: IBUPROFEN
     Indication: ARTHRITIS
     Dosage: ONGOING:YES
     Route: 065
  14. PEPCID [Concomitant]
     Active Substance: FAMOTIDINE
     Dosage: ONGOING:YES
     Route: 065
  15. FERRO-SEQUELS [Concomitant]
     Active Substance: DOCUSATE SODIUM\FERROUS FUMARATE
     Route: 065
  16. GLUCOSAMINE [Concomitant]
     Active Substance: GLUCOSAMINE
     Dosage: ONGOING:YES
     Route: 065
  17. LYSINE [Concomitant]
     Active Substance: LYSINE
     Indication: ORAL HERPES
     Dosage: ONGOING:NO
     Route: 065
  18. LYSINE [Concomitant]
     Active Substance: LYSINE
     Dosage: DURING AN OUTBREAK ;ONGOING: YES
     Route: 065
  19. STRATTERA [Concomitant]
     Active Substance: ATOMOXETINE HYDROCHLORIDE
     Indication: ATTENTION DEFICIT/HYPERACTIVITY DISORDER
     Dosage: ONGOING:YES
     Route: 065
  20. VAGIFEM [Concomitant]
     Active Substance: ESTRADIOL
     Indication: HYSTERECTOMY
     Dosage: ONGOING:YES
     Route: 065
  21. KEFLEX [Concomitant]
     Active Substance: CEPHALEXIN
     Indication: NEUROGENIC BLADDER
     Dosage: ONGOING:YES
     Route: 065
  22. ZOVIRAX [Concomitant]
     Active Substance: ACYCLOVIR
     Dosage: ONGOING:YES
     Route: 061
  23. MUCINEX DM [Concomitant]
     Active Substance: DEXTROMETHORPHAN HYDROBROMIDE\GUAIFENESIN
     Indication: HYPERSENSITIVITY
     Dosage: ONGOING:YES
     Route: 065
  24. B COMPLEX [VITAMIN B COMPLEX] [Concomitant]
     Dosage: ONGOING:YES
     Route: 065
  25. MAGNESIUM CARBONATE [Concomitant]
     Active Substance: MAGNESIUM CARBONATE
     Dosage: ONGOING:YES
     Route: 065

REACTIONS (8)
  - Therapy non-responder [Unknown]
  - Arthralgia [Not Recovered/Not Resolved]
  - Fall [Unknown]
  - Fatigue [Not Recovered/Not Resolved]
  - Pain [Not Recovered/Not Resolved]
  - Pruritus [Recovered/Resolved]
  - Spondylitis [Not Recovered/Not Resolved]
  - Oral herpes [Recovering/Resolving]

NARRATIVE: CASE EVENT DATE: 20190419
